FAERS Safety Report 19144851 (Version 2)
Quarter: 2021Q3

REPORT INFORMATION
  Report Type: Report from Study
  Country: FR (occurrence: FR)
  Receive Date: 20210416
  Receipt Date: 20210713
  Transmission Date: 20211014
  Serious: Yes (Death, Hospitalization)
  Sender: FDA-Public Use
  Company Number: FR-CELLTRION INC.-2021FR003699

PATIENT

DRUGS (23)
  1. RITUXIMAB (UNKNOWN) [Suspect]
     Active Substance: RITUXIMAB
     Dosage: EVERY 3 WEEKS, CYCLE 5
     Route: 041
     Dates: start: 20201008
  2. BENDAMUSTINE [Suspect]
     Active Substance: BENDAMUSTINE
     Indication: DIFFUSE LARGE B-CELL LYMPHOMA
     Dosage: ON DAY 1 AND DAY 2 EVERY 3 WEEKS
     Route: 042
     Dates: start: 20200709
  3. ACEBUTOLOL [Concomitant]
     Active Substance: ACEBUTOLOL
     Indication: HYPERTENSION
     Dosage: UNK, DAILY
     Route: 048
     Dates: start: 2015
  4. BENDAMUSTINE [Suspect]
     Active Substance: BENDAMUSTINE
     Dosage: CYCLE 4, DAY 1
     Route: 042
     Dates: start: 20200917
  5. FLUDEX [Concomitant]
     Indication: HYPERTENSION
     Dosage: UNK, DAILY
     Route: 048
     Dates: start: 2015
  6. RITUXIMAB (UNKNOWN) [Suspect]
     Active Substance: RITUXIMAB
     Dosage: EVERY 3 WEEKS, CYCLE 4
     Route: 041
     Dates: start: 20200917
  7. POLATUZUMAB VEDOTIN. [Suspect]
     Active Substance: POLATUZUMAB VEDOTIN
     Dosage: EVERY 3 WEEKS, CYCLE 3
     Route: 042
     Dates: start: 20200820, end: 20200820
  8. RITUXIMAB (UNKNOWN) [Suspect]
     Active Substance: RITUXIMAB
     Indication: DIFFUSE LARGE B-CELL LYMPHOMA
     Dosage: EVERY 3 WEEKS, CYCLE 1
     Route: 041
     Dates: start: 20200709
  9. RITUXIMAB (UNKNOWN) [Suspect]
     Active Substance: RITUXIMAB
     Dosage: EVERY 3 WEEKS, CYCLE 3
     Route: 041
     Dates: start: 20200820
  10. BENDAMUSTINE [Suspect]
     Active Substance: BENDAMUSTINE
     Dosage: CYCLE 5, DAY 1
     Route: 042
     Dates: start: 20201008
  11. BENDAMUSTINE [Suspect]
     Active Substance: BENDAMUSTINE
     Dosage: CYCLE 6, DAY1
     Route: 042
     Dates: start: 20201029, end: 20201030
  12. RITUXIMAB (UNKNOWN) [Suspect]
     Active Substance: RITUXIMAB
     Dosage: EVERY 3 WEEKS, CYCLE 2
     Route: 041
     Dates: start: 20200730
  13. POLATUZUMAB VEDOTIN. [Suspect]
     Active Substance: POLATUZUMAB VEDOTIN
     Dosage: EVERY 3 WEEKS, CYCLE 5
     Route: 042
     Dates: start: 20201008, end: 20201008
  14. BENDAMUSTINE [Suspect]
     Active Substance: BENDAMUSTINE
     Dosage: CYCLE 2, DAY 1
     Route: 042
     Dates: start: 20200730
  15. POLATUZUMAB VEDOTIN. [Suspect]
     Active Substance: POLATUZUMAB VEDOTIN
     Dosage: EVERY 3 WEEKS, CYCLE 6
     Route: 042
     Dates: start: 20201029, end: 20201030
  16. BENDAMUSTINE [Suspect]
     Active Substance: BENDAMUSTINE
     Dosage: CYCLE 3, DAY 1
     Route: 042
     Dates: start: 20200820
  17. RITUXIMAB (UNKNOWN) [Suspect]
     Active Substance: RITUXIMAB
     Dosage: EVERY 3 WEEKS, CYCLE 6
     Route: 041
     Dates: start: 20201029, end: 20201030
  18. WELLVONE [Concomitant]
     Active Substance: ATOVAQUONE
     Indication: PROPHYLAXIS
     Dosage: UNK, 0.5 PER DAY
     Route: 048
     Dates: start: 20200709
  19. KENZEN (FRANCE) [Concomitant]
     Indication: HYPERTENSION
     Dosage: UNK, DAILY
     Route: 048
     Dates: start: 2015
  20. POLATUZUMAB VEDOTIN. [Suspect]
     Active Substance: POLATUZUMAB VEDOTIN
     Indication: DIFFUSE LARGE B-CELL LYMPHOMA
     Dosage: EVERY 3 WEEKS, CYCLE 1
     Route: 042
     Dates: start: 20200709, end: 20200709
  21. POLATUZUMAB VEDOTIN. [Suspect]
     Active Substance: POLATUZUMAB VEDOTIN
     Dosage: EVERY 3 WEEKS, CYCLE 2
     Route: 042
     Dates: start: 20200730, end: 20200730
  22. POLATUZUMAB VEDOTIN. [Suspect]
     Active Substance: POLATUZUMAB VEDOTIN
     Dosage: EVERY 3 WEEKS, CYCLE 4
     Route: 042
     Dates: start: 20200917
  23. VALACICLOVIR [Concomitant]
     Active Substance: VALACYCLOVIR HYDROCHLORIDE
     Indication: PROPHYLAXIS
     Dosage: UNK, 0.5 PER DAY
     Route: 048
     Dates: start: 20200709

REACTIONS (4)
  - Central nervous system lymphoma [Fatal]
  - Fatigue [Unknown]
  - COVID-19 [Not Recovered/Not Resolved]
  - Rash [Recovering/Resolving]

NARRATIVE: CASE EVENT DATE: 20200910
